FAERS Safety Report 5401823-2 (Version None)
Quarter: 2007Q3

REPORT INFORMATION
  Report Type: 
  Country: None (occurrence: None)
  Receive Date: 20070726
  Receipt Date: 20070711
  Transmission Date: 20080115
  Serious: Yes (Other)
  Sender: FDA-Public Use
  Company Number: VNL_00670_2007

PATIENT
  Sex: Female

DRUGS (1)
  1. APO-GO (APO-GO - APOMOPHINE HYDROCHLORIDE (NOT SPECIFIED) [Suspect]
     Indication: DRUG USE FOR UNKNOWN INDICATION
     Dosage: 4 MG PER HOUR SUBCUTANEOUS
     Route: 058
     Dates: start: 20070709

REACTIONS (2)
  - CONDITION AGGRAVATED [None]
  - HYPERTENSION [None]
